APPROVED DRUG PRODUCT: APALUTAMIDE
Active Ingredient: APALUTAMIDE
Strength: 60MG
Dosage Form/Route: TABLET;ORAL
Application: A217113 | Product #001 | TE Code: AB
Applicant: ZYDUS WORLDWIDE DMCC
Approved: Mar 17, 2025 | RLD: No | RS: No | Type: RX